FAERS Safety Report 20881406 (Version 1)
Quarter: 2022Q2

REPORT INFORMATION
  Report Type: Spontaneous
  Country: IR (occurrence: IR)
  Receive Date: 20220526
  Receipt Date: 20220526
  Transmission Date: 20220720
  Serious: Yes (Death, Hospitalization, Other)
  Sender: FDA-Public Use
  Company Number: IR-BION-010782

PATIENT
  Age: 60 Year
  Sex: Female

DRUGS (2)
  1. AMPHETAMINE SULFATE [Suspect]
     Active Substance: AMPHETAMINE SULFATE
     Indication: Product used for unknown indication
  2. ALPRAZOLAM [Suspect]
     Active Substance: ALPRAZOLAM
     Indication: Product used for unknown indication

REACTIONS (11)
  - Cardio-respiratory arrest [Fatal]
  - Suicide attempt [Unknown]
  - Toxicity to various agents [Unknown]
  - Bundle branch block [Unknown]
  - Gastrointestinal perforation [Unknown]
  - Peritonitis [Unknown]
  - Renal failure [Unknown]
  - Overdose [Not Recovered/Not Resolved]
  - Cytomegalovirus gastritis [Unknown]
  - Sepsis [Unknown]
  - Metabolic encephalopathy [Unknown]
